FAERS Safety Report 7605573-3 (Version None)
Quarter: 2011Q3

REPORT INFORMATION
  Report Type: 
  Country: None (occurrence: None)
  Receive Date: 20110713
  Receipt Date: 20110701
  Transmission Date: 20111222
  Serious: Yes (Other)
  Sender: FDA-Public Use
  Company Number: US-BAYER-201040345NA

PATIENT
  Age: 44 Year
  Sex: Female
  Weight: 71.2 kg

DRUGS (18)
  1. AMBIEN [Concomitant]
  2. VERSED [Concomitant]
     Dosage: UNK
     Dates: start: 19990913
  3. NITROGLYCERIN [Concomitant]
     Dosage: UNK
     Dates: start: 19990913
  4. MANNITOL [Concomitant]
     Dosage: 25 G, UNK
     Route: 042
     Dates: start: 19990913, end: 19990913
  5. ACETYLSALICYLIC ACID SRT [Concomitant]
  6. ATIVAN [Concomitant]
     Dosage: UNK
     Dates: start: 19990913
  7. CEFTIN [Concomitant]
     Dosage: 1 G, UNK
     Route: 042
     Dates: start: 19990913
  8. PRILOSEC [Concomitant]
  9. LOPRESSOR [Concomitant]
  10. PROPOFOL [Concomitant]
     Dosage: UNK
     Dates: start: 19990913
  11. SOLU-MEDROL [Concomitant]
     Dosage: 1 G, UNK
     Route: 042
     Dates: start: 19990913, end: 19990913
  12. PREDNISONE [Concomitant]
     Dosage: UNK
  13. PROTAMINE SULFATE [Concomitant]
  14. HEPARIN [Concomitant]
     Dosage: 15000 U, UNK
     Route: 042
     Dates: start: 19990913, end: 19990913
  15. TRASYLOL [Suspect]
     Indication: CORONARY ARTERY BYPASS
     Dosage: UNK
     Route: 042
     Dates: start: 19990913
  16. AMICAR [Concomitant]
     Dosage: 10 G, UNK
     Route: 042
     Dates: start: 19990913, end: 19990913
  17. FENTANYL-100 [Concomitant]
     Dosage: UNK
     Dates: start: 19990913
  18. ZEMURON [Concomitant]
     Dosage: UNK
     Dates: start: 19990913

REACTIONS (13)
  - PAIN [None]
  - NERVOUSNESS [None]
  - RENAL INJURY [None]
  - FEAR [None]
  - DEPRESSION [None]
  - ANXIETY [None]
  - FEAR OF DEATH [None]
  - MULTI-ORGAN FAILURE [None]
  - INJURY [None]
  - RENAL FAILURE [None]
  - UNEVALUABLE EVENT [None]
  - ANHEDONIA [None]
  - EMOTIONAL DISTRESS [None]
